FAERS Safety Report 9433060 (Version 1)
Quarter: 2013Q3

REPORT INFORMATION
  Report Type: Report from Study
  Country: US (occurrence: US)
  Receive Date: 20130731
  Receipt Date: 20130731
  Transmission Date: 20140515
  Serious: Yes (Other)
  Sender: FDA-Public Use
  Company Number: US-JNJFOC-20130714702

PATIENT
  Sex: Male

DRUGS (2)
  1. REMICADE [Suspect]
     Indication: SURGERY
     Route: 042
     Dates: start: 2013
  2. PREDNISONE [Concomitant]
     Indication: SURGERY
     Dates: start: 2013

REACTIONS (1)
  - Aortic aneurysm [Not Recovered/Not Resolved]
